FAERS Safety Report 4862372-3 (Version None)
Quarter: 2005Q4

REPORT INFORMATION
  Report Type: 
  Country: None (occurrence: None)
  Receive Date: 20051221
  Receipt Date: 20051215
  Transmission Date: 20060501
  Serious: No
  Sender: FDA-Public Use
  Company Number: JP-JNJFOC-20051106282

PATIENT
  Age: 39 Year
  Sex: Female

DRUGS (9)
  1. ITRIZOLE [Suspect]
     Route: 048
     Dates: start: 20051115, end: 20051121
  2. EFAVIRENZ [Concomitant]
     Route: 048
     Dates: start: 20051024
  3. ANTIBIOTICS-RESISTANT LACTIC ACID BACTERIAE [Concomitant]
     Route: 048
     Dates: start: 20051024
  4. LOPERAMIDE HYDROCHLORIDE [Concomitant]
     Route: 048
     Dates: start: 20051024
  5. VITAMIN PREPARATIONS [Concomitant]
     Dates: start: 20051024
  6. FAMOTIDINE [Concomitant]
  7. INITIATION MEDIUM [Concomitant]
  8. INITIATION MEDIUM [Concomitant]
  9. INITIATION MEDIUM [Concomitant]

REACTIONS (1)
  - PLATELET COUNT ABNORMAL [None]
